FAERS Safety Report 9758387 (Version 2)
Quarter: 2013Q4

REPORT INFORMATION
  Report Type: Spontaneous
  Country: BG (occurrence: BG)
  Receive Date: 20131216
  Receipt Date: 20131220
  Transmission Date: 20140711
  Serious: Yes (Life-Threatening, Hospitalization)
  Sender: FDA-Public Use
  Company Number: PHHY2013BG144164

PATIENT
  Age: 3 Month
  Sex: Female
  Weight: 5.3 kg

DRUGS (3)
  1. TIMOLOL [Suspect]
     Indication: DEVELOPMENTAL GLAUCOMA
  2. BRIMONIDINE [Suspect]
     Indication: DEVELOPMENTAL GLAUCOMA
  3. BRINZOLAMIDE [Suspect]
     Indication: DEVELOPMENTAL GLAUCOMA
     Route: 061

REACTIONS (27)
  - Cardiogenic shock [Recovered/Resolved]
  - Depressed level of consciousness [Recovered/Resolved]
  - Toxicity to various agents [Recovered/Resolved]
  - Cyanosis [Recovered/Resolved]
  - Wheezing [Recovered/Resolved]
  - Hypopnoea [Recovered/Resolved]
  - Hepatomegaly [Recovered/Resolved]
  - Stupor [Recovered/Resolved]
  - Hypotonia [Recovered/Resolved]
  - Hyporeflexia [Recovered/Resolved]
  - Lactic acidosis [Recovered/Resolved]
  - Sinus bradycardia [Recovered/Resolved]
  - Hypotension [Recovered/Resolved]
  - Peripheral coldness [Recovered/Resolved]
  - Respiratory arrest [Recovered/Resolved]
  - Pallor [Recovered/Resolved]
  - Unresponsive to stimuli [Recovered/Resolved]
  - Apnoea [Recovered/Resolved]
  - Pulse absent [Recovered/Resolved]
  - Bronchial obstruction [Recovered/Resolved]
  - Lethargy [Recovered/Resolved]
  - Bradypnoea [Recovered/Resolved]
  - Hypothermia [Recovered/Resolved]
  - Prolonged expiration [Recovered/Resolved]
  - Malaise [Recovered/Resolved]
  - Somnolence [Recovered/Resolved]
  - Miosis [Recovered/Resolved]
